FAERS Safety Report 9204849 (Version 2)
Quarter: 2013Q2

REPORT INFORMATION
  Report Type: Spontaneous
  Country: US (occurrence: None)
  Receive Date: 20130329
  Receipt Date: 20130410
  Transmission Date: 20140414
  Serious: Yes (Hospitalization, Other)
  Sender: FDA-Public Use
  Company Number: JPI-P-030645

PATIENT
  Age: 57 Year
  Sex: Female

DRUGS (17)
  1. XYREM [Suspect]
     Indication: CATAPLEXY
     Dosage: 4.5 GM (2.25GM, 2 IN 1D)
     Route: 048
     Dates: start: 20120605
  2. ALBUTEROL [Concomitant]
  3. BUPROPION [Concomitant]
  4. CLONAZEPAM [Concomitant]
  5. CEVIMELINE [Concomitant]
  6. FISH OIL [Concomitant]
  7. FLUOXETINE [Concomitant]
  8. FUROSEMIDE [Concomitant]
  9. ZIPRASIDONE [Concomitant]
  10. PREGABALIN [Concomitant]
  11. METHYLPHENIDATE [Concomitant]
  12. MULTI VITAMIN [Concomitant]
  13. MOMETASONE FUROATE [Concomitant]
  14. PRAMIPEXOLE [Concomitant]
  15. CICLOSPORIN [Concomitant]
  16. MONTELUKAST [Concomitant]
  17. TOPIRAMATE [Concomitant]

REACTIONS (9)
  - Pneumonia [None]
  - Irritability [None]
  - Cardiomegaly [None]
  - Cardiac failure congestive [None]
  - Vomiting [None]
  - Dizziness [None]
  - Pyrexia [None]
  - Knee arthroplasty [None]
  - Chest pain [None]
